FAERS Safety Report 18623208 (Version 3)
Quarter: 2020Q4

REPORT INFORMATION
  Report Type: Report from Study
  Country: BE (occurrence: BE)
  Receive Date: 20201216
  Receipt Date: 20201228
  Transmission Date: 20210114
  Serious: Yes (Hospitalization)
  Sender: FDA-Public Use
  Company Number: BE-PFIZER INC-2020492692

PATIENT
  Age: 64 Year
  Sex: Male
  Weight: 90 kg

DRUGS (10)
  1. AVELUMAB [Suspect]
     Active Substance: AVELUMAB
     Indication: BLADDER TRANSITIONAL CELL CARCINOMA
     Dosage: 900 MG, CYCLIC (EVERY 2 WEEKS)
     Route: 042
     Dates: start: 20201007
  2. AVELUMAB [Suspect]
     Active Substance: AVELUMAB
     Dosage: 900 MG
     Route: 042
     Dates: start: 20201118, end: 20201118
  3. DOXORUBICIN HCL [Suspect]
     Active Substance: DOXORUBICIN HYDROCHLORIDE
     Indication: BLADDER TRANSITIONAL CELL CARCINOMA
     Dosage: 509 MG, CYCLIC (EVERY 2 WEEKS)
     Route: 042
     Dates: start: 20201007
  4. CISPLATIN. [Suspect]
     Active Substance: CISPLATIN
     Dosage: 1484 MG
     Route: 042
     Dates: start: 20201118, end: 20201118
  5. METHOTREXATE SODIUM. [Suspect]
     Active Substance: METHOTREXATE SODIUM
     Indication: BLADDER TRANSITIONAL CELL CARCINOMA
     Dosage: 509 MG, CYCLIC (EVERY 2 WEEKS)
     Route: 042
     Dates: start: 20201006
  6. METHOTREXATE SODIUM. [Suspect]
     Active Substance: METHOTREXATE SODIUM
     Dosage: 509 MG
     Route: 042
     Dates: start: 20201117, end: 20201117
  7. VINBLASTINE [Suspect]
     Active Substance: VINBLASTINE
     Indication: BLADDER TRANSITIONAL CELL CARCINOMA
     Dosage: 636 MG, CYCLIC (EVERY 2 WEEKS)
     Route: 042
     Dates: start: 20201007
  8. VINBLASTINE [Suspect]
     Active Substance: VINBLASTINE
     Dosage: 636 MG
     Route: 042
     Dates: start: 20201118, end: 20201118
  9. CISPLATIN. [Suspect]
     Active Substance: CISPLATIN
     Indication: BLADDER TRANSITIONAL CELL CARCINOMA
     Dosage: 1484 MG, CYCLIC (EVERY 2 WEEKS)
     Route: 042
     Dates: start: 20201007
  10. DOXORUBICIN HCL [Suspect]
     Active Substance: DOXORUBICIN HYDROCHLORIDE
     Dosage: 509 MG
     Route: 042
     Dates: start: 20201118, end: 20201118

REACTIONS (2)
  - COVID-19 [Not Recovered/Not Resolved]
  - Acute kidney injury [Recovered/Resolved]

NARRATIVE: CASE EVENT DATE: 20201202
